FAERS Safety Report 11926311 (Version 6)
Quarter: 2016Q2

REPORT INFORMATION
  Report Type: Report from Study
  Country: US (occurrence: US)
  Receive Date: 20160119
  Receipt Date: 20160503
  Transmission Date: 20160815
  Serious: Yes (Life-Threatening, Hospitalization, Disabling, Other)
  Sender: FDA-Public Use
  Company Number: US-BRISTOL-MYERS SQUIBB COMPANY-BMS-2016-001569

PATIENT
  Age: 60 Year
  Sex: Female
  Weight: 65.8 kg

DRUGS (8)
  1. LENALIDOMIDE [Suspect]
     Active Substance: LENALIDOMIDE
     Indication: PLASMA CELL MYELOMA
     Dosage: 350 MG, UNK
     Route: 065
     Dates: start: 20151221, end: 20160103
  2. LENALIDOMIDE [Suspect]
     Active Substance: LENALIDOMIDE
     Dosage: 350 MG, UNK
     Route: 065
     Dates: start: 20150915, end: 20160103
  3. ELOTUZUMAB. [Suspect]
     Active Substance: ELOTUZUMAB
     Dosage: 1316 MG, UNK
     Route: 065
     Dates: start: 20151221, end: 20151231
  4. ELOTUZUMAB. [Suspect]
     Active Substance: ELOTUZUMAB
     Indication: PLASMA CELL MYELOMA
     Dosage: 1316 MG, UNK
     Route: 065
     Dates: start: 20150915, end: 20151231
  5. BORTEZOMIB [Suspect]
     Active Substance: BORTEZOMIB
     Indication: PLASMA CELL MYELOMA
     Dosage: 6.4 MG, UNK
     Route: 065
     Dates: start: 20151221, end: 20151231
  6. BORTEZOMIB [Suspect]
     Active Substance: BORTEZOMIB
     Dosage: 6.4 MG, UNK
     Route: 065
     Dates: start: 20150915, end: 20151231
  7. DEXAMETHASONE. [Suspect]
     Active Substance: DEXAMETHASONE
     Dosage: 160 MG, UNK
     Route: 065
     Dates: start: 20150915, end: 20160101
  8. DEXAMETHASONE. [Suspect]
     Active Substance: DEXAMETHASONE
     Indication: PLASMA CELL MYELOMA
     Dosage: 160 MG, UNK
     Route: 065
     Dates: start: 20151221, end: 20160101

REACTIONS (3)
  - Respiratory failure [Recovered/Resolved]
  - Lung infection [Recovered/Resolved]
  - Sepsis [Recovered/Resolved]

NARRATIVE: CASE EVENT DATE: 20160106
